FAERS Safety Report 12789099 (Version 1)
Quarter: 2016Q3

REPORT INFORMATION
  Report Type: Spontaneous
  Country: US (occurrence: US)
  Receive Date: 20160928
  Receipt Date: 20160928
  Transmission Date: 20161109
  Serious: No
  Sender: FDA-Public Use
  Company Number: US-PFIZER INC-2016453291

PATIENT
  Age: 73 Year
  Sex: Male
  Weight: 122 kg

DRUGS (19)
  1. ASPIRIN /00002701/ [Concomitant]
     Active Substance: ASPIRIN
     Indication: ANTICOAGULANT THERAPY
     Dosage: 325 MG, 1X/DAY
  2. SPIRONOLACTONE. [Concomitant]
     Active Substance: SPIRONOLACTONE
     Indication: MINERAL SUPPLEMENTATION
     Dosage: 25 MG, DAILY
  3. FISH OIL [Concomitant]
     Active Substance: FISH OIL
     Dosage: 1000 MG, 2X/DAY
  4. TYLENOL [Concomitant]
     Active Substance: ACETAMINOPHEN
     Dosage: 1950 MG, 2X/DAY, ^THREE 650 MG TYLENOL TWICE A DAY^
  5. LISINOPRIL. [Concomitant]
     Active Substance: LISINOPRIL
     Indication: BLOOD PRESSURE ABNORMAL
  6. METOPROLOL TARTRATE. [Concomitant]
     Active Substance: METOPROLOL TARTRATE
     Indication: CARDIAC FAILURE
     Dosage: 100 MG, 2X/DAY, ^ONE IN THE MORNING AND ONE AT NIGHT^
  7. SOTALOL HYDROCHLORIDE. [Concomitant]
     Active Substance: SOTALOL HYDROCHLORIDE
     Indication: HEART RATE INCREASED
     Dosage: 160 MG, DAILY, ^80 MG, 2 TABLETS DAILY^
  8. DIGOXIN. [Concomitant]
     Active Substance: DIGOXIN
     Indication: CARDIAC FAILURE
     Dosage: 0.125 MG, 1X/DAY
  9. LISINOPRIL. [Concomitant]
     Active Substance: LISINOPRIL
     Indication: CARDIAC DISORDER
     Dosage: 10 MG, 1X/DAY
  10. ALLOPURINOL. [Concomitant]
     Active Substance: ALLOPURINOL
     Indication: GOUT
     Dosage: 100 MG, 2X/DAY
  11. FUROSEMIDE. [Concomitant]
     Active Substance: FUROSEMIDE
     Indication: DIURETIC THERAPY
     Dosage: 120 MG, DAILY, ^40 MG, ONE TABLET IN THE MORNING AND 2 TABLETS AT NIGHT^
  12. METOPROLOL TARTRATE. [Concomitant]
     Active Substance: METOPROLOL TARTRATE
     Indication: BLOOD PRESSURE ABNORMAL
  13. PANTOPRAZOLE SODIUM. [Concomitant]
     Active Substance: PANTOPRAZOLE SODIUM
     Dosage: 40 MG, 1X/DAY, ^ONE TABLET DAILY 30 MINUTES BEFORE EATING^
  14. VITAMIN D3 [Concomitant]
     Active Substance: CHOLECALCIFEROL
     Dosage: 1000 IU, DAILY
  15. LOVASTATIN. [Concomitant]
     Active Substance: LOVASTATIN
     Indication: BLOOD CHOLESTEROL ABNORMAL
     Dosage: 20 MG, 1X/DAY, ^ONE TABLET AT BED TIME^
  16. POLYETHYLENE GLYCOL [Concomitant]
     Active Substance: POLYETHYLENE GLYCOLS
     Dosage: 17 G, ^TWICE DAILY OR AS NEEDED^
  17. MAGNESIUM [Concomitant]
     Active Substance: MAGNESIUM
     Dosage: 400 MG, 2X/DAY
  18. LYRICA [Suspect]
     Active Substance: PREGABALIN
     Indication: DIABETIC NEUROPATHY
     Dosage: 75 MG, 2X/DAY
     Route: 048
     Dates: start: 201608
  19. NOVOLIN [Concomitant]
     Active Substance: INSULIN HUMAN
     Indication: BLOOD INSULIN ABNORMAL
     Dosage: 100 IU, 2X/DAY

REACTIONS (2)
  - Drug effect incomplete [Unknown]
  - Somnolence [Not Recovered/Not Resolved]
